FAERS Safety Report 23422516 (Version 3)
Quarter: 2024Q2

REPORT INFORMATION
  Report Type: Report from Study
  Country: US (occurrence: US)
  Receive Date: 20240119
  Receipt Date: 20240502
  Transmission Date: 20240715
  Serious: Yes (Hospitalization, Other)
  Sender: FDA-Public Use
  Company Number: US-UCBSA-2023028544

PATIENT
  Age: 12 Year
  Sex: Male
  Weight: 28 kg

DRUGS (33)
  1. DOXECITINE [Suspect]
     Active Substance: DOXECITINE
     Indication: Mitochondrial DNA depletion
     Dosage: 3.7 GRAM, 3X/DAY (TID)
     Route: 048
     Dates: start: 20190218
  2. DOXRIBTIMINE [Suspect]
     Active Substance: DOXRIBTIMINE
     Dosage: 800 MG/KG/DAY
     Route: 048
  3. KEPPRA [Suspect]
     Active Substance: LEVETIRACETAM
     Indication: Product used for unknown indication
     Dosage: 8 MILLILITER, 2X/DAY (BID)
     Route: 050
     Dates: start: 20230218
  4. FOSAMAX [Concomitant]
     Active Substance: ALENDRONATE SODIUM
     Indication: Product used for unknown indication
     Dosage: 37.5 MILLILITER, WEEKLY (QW)
     Route: 050
     Dates: start: 20230504
  5. CHILDREN^S PAIN RELIEF [Concomitant]
     Active Substance: ACETAMINOPHEN
     Indication: Pyrexia
     Dosage: 10 MILLILITER, 6X/DAY (320 MG TOTAL)
     Dates: start: 20221125
  6. CHILDREN^S PAIN RELIEF [Concomitant]
     Active Substance: ACETAMINOPHEN
     Indication: Pain
  7. PULMICORT FLEXHALER [Concomitant]
     Active Substance: BUDESONIDE
     Indication: Wheezing
     Dosage: 2 MILLILITER, 2X/DAY (BID) (0 5 MG TOTAL) BY NEBULIZAT1ON
     Dates: start: 20221212, end: 20231212
  8. KLONOPIN [Concomitant]
     Active Substance: CLONAZEPAM
     Indication: Seizure cluster
     Dosage: 0.25 MILLIGRAM, ONCE DAILY (QD)
     Route: 048
     Dates: start: 20231218
  9. COENZYME Q10 [Concomitant]
     Active Substance: DIETARY SUPPLEMENT\UBIDECARENONE
     Indication: Product used for unknown indication
     Dosage: 200 MILLIGRAM, 2X/DAY (BID)
     Route: 050
  10. CREATINE MONOHYDRATE [Concomitant]
     Active Substance: CREATINE MONOHYDRATE
     Indication: Product used for unknown indication
     Dosage: GIVE 4 2 ML (2100MG) DAILY AT 10AM GIVE 2.8 ML (1400 G) DAILY AT 10PM
  11. CULTURELLE [Concomitant]
     Active Substance: LACTOBACILLUS RHAMNOSUS
     Indication: Product used for unknown indication
     Dosage: 1 DOSAGE FORM, ONCE DAILY (QD)
     Route: 048
     Dates: start: 20221209, end: 20231208
  12. FLUTICASONE PROPIONATE [Concomitant]
     Active Substance: FLUTICASONE PROPIONATE
     Indication: Rhinitis allergic
     Dosage: 2 DOSAGE FORM, 2X/DAY (BID)
     Route: 045
     Dates: start: 20221005, end: 20231005
  13. FLUTICASONE PROPIONATE [Concomitant]
     Active Substance: FLUTICASONE PROPIONATE
     Indication: Seasonal allergy
  14. FLUTICASONE PROPIONATE [Concomitant]
     Active Substance: FLUTICASONE PROPIONATE
     Indication: Tracheostomy
  15. FLUTICASONE PROPIONATE [Concomitant]
     Active Substance: FLUTICASONE PROPIONATE
     Indication: Neuromuscular scoliosis
  16. FLUTICASONE PROPIONATE [Concomitant]
     Active Substance: FLUTICASONE PROPIONATE
     Indication: Dependence on respirator
  17. ADVIL [Concomitant]
     Active Substance: IBUPROFEN
     Indication: Pain
     Dosage: 10 MILLILITER, 4X/DAY (QID)
     Route: 050
     Dates: start: 20221125
  18. ADVIL [Concomitant]
     Active Substance: IBUPROFEN
     Indication: Pyrexia
  19. LEVALBUTEROL [Concomitant]
     Active Substance: LEVALBUTEROL
     Indication: Dependence on respirator
     Dosage: INHALE THE CONTENTS OF ONE VIAL (0 63 MG TOTAL BY NEBULIZATION 2 (TWO) TIMES DAILY AND EVERY 4 HOURS
  20. LEVALBUTEROL [Concomitant]
     Active Substance: LEVALBUTEROL
     Indication: Chronic respiratory failure
  21. LEVALBUTEROL [Concomitant]
     Active Substance: LEVALBUTEROL
     Indication: Neuromuscular scoliosis
  22. LEVALBUTEROL [Concomitant]
     Active Substance: LEVALBUTEROL
     Indication: Tracheostomy
  23. LEVOCARNITINE [Concomitant]
     Active Substance: LEVOCARNITINE
     Indication: Product used for unknown indication
     Dosage: 1.4 MILLILITER, 2X/DAY (BID)
     Route: 050
     Dates: start: 20221114, end: 20231114
  24. CLARITIN [Concomitant]
     Active Substance: LORATADINE
     Indication: Product used for unknown indication
     Dosage: 1 DOSAGE FORM, 2X/DAY (BID)
     Dates: start: 20230204
  25. ATIVAN [Concomitant]
     Active Substance: LORAZEPAM
     Indication: Seizure cluster
     Dosage: 1.5 MILLILITER
     Dates: start: 20230216
  26. VERSED [Concomitant]
     Active Substance: MIDAZOLAM HYDROCHLORIDE
     Indication: Product used for unknown indication
     Dosage: 3 MILLILITER
     Route: 050
     Dates: start: 20230531, end: 20230531
  27. BACITRACIN ZINC\NEOMYCIN SULFATE\POLYMYXIN B SULFATE [Concomitant]
     Active Substance: BACITRACIN ZINC\NEOMYCIN SULFATE\POLYMYXIN B SULFATE
     Indication: Product used for unknown indication
     Dosage: UNK
     Route: 061
  28. MYCOSTATIN [Concomitant]
     Active Substance: NYSTATIN
     Indication: Product used for unknown indication
     Dosage: UNK, 2X/DAY (BID)
     Route: 061
     Dates: start: 20230531
  29. MULTI VITAMIN [ASCORBIC ACID;FOLIC ACID;NICOTINIC ACID;PYRIDOXINE HYDR [Concomitant]
     Indication: Product used for unknown indication
     Dosage: 1 DOSAGE FORM, ONCE DAILY (QD)
     Route: 050
  30. AQUASOL E [TOCOPHEROL] [Concomitant]
     Indication: Product used for unknown indication
     Dosage: 4 MILLILITER, ONCE DAILY (QD)
     Dates: start: 20221106, end: 20231108
  31. SODIUM CHLORIDE [Concomitant]
     Active Substance: SODIUM CHLORIDE
     Indication: Chronic respiratory failure
     Dosage: 4 MILLILITER, 2X/DAY (BID)
     Dates: start: 20220718
  32. TOBRAMYCIN [Concomitant]
     Active Substance: TOBRAMYCIN\TOBRAMYCIN SULFATE
     Indication: Product used for unknown indication
     Dosage: INHALE THE CONTE TS OF 1 AMPULE VI NEBULIZER TWICE DAILY FOR 28 DAYS THEN 28 DAYS OFF
     Dates: start: 20230314
  33. LEVAQUIN [Concomitant]
     Active Substance: LEVOFLOXACIN
     Indication: Product used for unknown indication
     Dosage: 1 DOSAGE FORM, ONCE DAILY (QD) FOR 2 DAYS
     Route: 050

REACTIONS (11)
  - Upper respiratory tract infection bacterial [Recovered/Resolved]
  - Respiratory distress [Unknown]
  - Tracheitis [Unknown]
  - Parainfluenzae virus infection [Unknown]
  - Respiratory tract infection viral [Unknown]
  - Pyrexia [Recovered/Resolved]
  - Gastrostomy [Unknown]
  - Tracheostomy [Unknown]
  - Serratia infection [Recovered/Resolved]
  - Mucosal discolouration [Unknown]
  - Off label use [Unknown]

NARRATIVE: CASE EVENT DATE: 20230218
